FAERS Safety Report 6343667-3 (Version None)
Quarter: 2009Q3

REPORT INFORMATION
  Report Type: 
  Country: None (occurrence: None)
  Receive Date: 20090903
  Receipt Date: 20090903
  Transmission Date: 20100115
  Serious: No
  Sender: FDA-Public Use
  Company Number: None

PATIENT
  Sex: Male
  Weight: 68.4932 kg

DRUGS (1)
  1. LIDODERM [Suspect]
     Indication: HERPES ZOSTER
     Dosage: 1 PATCH EVERY 12 HRS
     Dates: start: 20090812

REACTIONS (2)
  - BLISTER [None]
  - RASH [None]
